FAERS Safety Report 18369779 (Version 18)
Quarter: 2024Q4

REPORT INFORMATION
  Report Type: Report from Study
  Country: DE (occurrence: DE)
  Receive Date: 20201012
  Receipt Date: 20241115
  Transmission Date: 20250114
  Serious: Yes (Hospitalization, Other)
  Sender: PFIZER
  Company Number: DE-PFM-2020-19606

PATIENT
  Age: 76 Year
  Sex: Male
  Weight: 79 kg

DRUGS (18)
  1. ENCORAFENIB [Suspect]
     Active Substance: ENCORAFENIB
     Indication: Malignant melanoma
     Dosage: 450 MG, QD (1/DAY)
     Route: 048
     Dates: start: 20200922, end: 20200924
  2. ENCORAFENIB [Suspect]
     Active Substance: ENCORAFENIB
     Dosage: 450 MG, QD (1/DAY)
     Route: 048
     Dates: start: 20200925, end: 20200930
  3. ENCORAFENIB [Suspect]
     Active Substance: ENCORAFENIB
     Dosage: 450 MG, QD (1/DAY)
     Route: 048
     Dates: start: 20201007, end: 20210625
  4. BINIMETINIB [Suspect]
     Active Substance: BINIMETINIB
     Indication: Malignant melanoma
     Dosage: 45 MG, BID (2/DAY)
     Route: 048
     Dates: start: 20200922, end: 20200924
  5. BINIMETINIB [Suspect]
     Active Substance: BINIMETINIB
     Dosage: 45 MG, BID (2/DAY)
     Route: 048
     Dates: start: 20200925, end: 20200930
  6. BINIMETINIB [Suspect]
     Active Substance: BINIMETINIB
     Dosage: 45 MG, BID (2/DAY)
     Route: 048
     Dates: start: 20201007, end: 20210625
  7. RAMIPRIL [Concomitant]
     Active Substance: RAMIPRIL
     Dosage: UNK
     Route: 065
     Dates: start: 20100101, end: 20200923
  8. RAMIPRIL [Concomitant]
     Active Substance: RAMIPRIL
     Dosage: UNK
     Route: 065
     Dates: start: 20201030
  9. SIMVASTATIN [Concomitant]
     Active Substance: SIMVASTATIN
     Dosage: UNK
     Route: 065
     Dates: start: 20100101, end: 20201206
  10. PANTOPRAZOLE SODIUM [Concomitant]
     Active Substance: PANTOPRAZOLE SODIUM
     Indication: Prophylaxis
     Dosage: UNK
     Route: 065
     Dates: start: 20200720, end: 20210518
  11. DEXAMETHASONE [Concomitant]
     Active Substance: DEXAMETHASONE
     Indication: Metastases to central nervous system
     Dosage: UNK
     Route: 065
     Dates: start: 20200801, end: 20200923
  12. DEXAMETHASONE [Concomitant]
     Active Substance: DEXAMETHASONE
     Dosage: 4 MG
     Route: 065
     Dates: start: 20201003, end: 20210111
  13. DEXAMETHASONE [Concomitant]
     Active Substance: DEXAMETHASONE
     Dosage: 2 MG
     Route: 065
     Dates: start: 20210112, end: 20210209
  14. DEXAMETHASONE [Concomitant]
     Active Substance: DEXAMETHASONE
     Dosage: 2 MG
     Route: 065
     Dates: start: 20210412, end: 20210511
  15. DEXAMETHASONE [Concomitant]
     Active Substance: DEXAMETHASONE
     Dosage: 8 MG
     Route: 065
     Dates: start: 20210407, end: 20210409
  16. ENOXAPARIN [Concomitant]
     Active Substance: ENOXAPARIN
     Indication: General physical health deterioration
     Dosage: UNK
     Route: 065
     Dates: start: 20200924, end: 20200930
  17. COMIRNATY [Concomitant]
     Indication: COVID-19 immunisation
     Dosage: DOSE 1, SINGLE
     Dates: start: 20210407, end: 20210407
  18. COMIRNATY [Concomitant]
     Dosage: DOSE 2, SINGLE
     Dates: start: 20210519, end: 20210519

REACTIONS (22)
  - Haemorrhoidal haemorrhage [Recovered/Resolved]
  - General physical health deterioration [Not Recovered/Not Resolved]
  - Epilepsy [Recovered/Resolved]
  - Muscular weakness [Not Recovered/Not Resolved]
  - Hypokalaemia [Recovered/Resolved]
  - Escherichia infection [Recovered/Resolved]
  - Alanine aminotransferase increased [Not Recovered/Not Resolved]
  - Dysgeusia [Recovered/Resolved]
  - Blood alkaline phosphatase increased [Not Recovered/Not Resolved]
  - Decreased appetite [Recovered/Resolved]
  - Blood creatine phosphokinase increased [Not Recovered/Not Resolved]
  - Productive cough [Recovered/Resolved]
  - Pyrexia [Recovered/Resolved]
  - Gastrointestinal pain [Not Recovered/Not Resolved]
  - Cystitis [Recovered/Resolved]
  - Pain [Recovered/Resolved]
  - Urinary tract infection [Recovered/Resolved]
  - Dizziness [Not Recovered/Not Resolved]
  - Urinary tract infection [Recovered/Resolved]
  - Pain [Not Recovered/Not Resolved]
  - Restlessness [Not Recovered/Not Resolved]
  - Constipation [Not Recovered/Not Resolved]

NARRATIVE: CASE EVENT DATE: 20200922
